FAERS Safety Report 5714979-9 (Version None)
Quarter: 2008Q2

REPORT INFORMATION
  Report Type: 
  Country: None (occurrence: None)
  Receive Date: 20080423
  Receipt Date: 20080413
  Transmission Date: 20081010
  Serious: Yes (Death)
  Sender: FDA-Public Use
  Company Number: TH-BAXTER-2008BH003042

PATIENT
  Age: 76 Year
  Sex: Male

DRUGS (1)
  1. DIANEAL [Suspect]
     Indication: PERITONEAL DIALYSIS
     Dosage: DOSE UNIT:CUBIC CENTIMETER
     Route: 033
     Dates: start: 20070107, end: 20080316

REACTIONS (1)
  - CARDIAC FAILURE [None]
